FAERS Safety Report 4394342-6 (Version None)
Quarter: 2004Q3

REPORT INFORMATION
  Report Type: 
  Country: None (occurrence: None)
  Receive Date: 20040706
  Receipt Date: 20040624
  Transmission Date: 20050211
  Serious: Yes (Hospitalization)
  Sender: FDA-Public Use
  Company Number: USA-2004-0015715

PATIENT
  Age: 76 Year
  Sex: Female
  Weight: 65.8 kg

DRUGS (7)
  1. OXYCONTIN [Suspect]
     Indication: PAIN
     Dosage: 20 MG, Q12H, ORAL
     Route: 048
     Dates: start: 20040113, end: 20030113
  2. PERCOCET [Suspect]
     Indication: PAIN
     Dosage: 4 TABLETS, PRN, ORAL
     Route: 048
     Dates: start: 20040113, end: 20040113
  3. DILAUDID [Suspect]
     Indication: PAIN
     Dates: start: 20040113, end: 20030113
  4. FUROSEMIDE [Concomitant]
  5. SYNTHROID [Concomitant]
  6. DIOVAN [Concomitant]
  7. WARFARIN (WARFARIN) [Concomitant]

REACTIONS (10)
  - AGGRESSION [None]
  - AGITATION [None]
  - BRAIN DAMAGE [None]
  - BURNING SENSATION [None]
  - CONTUSION [None]
  - HYPOAESTHESIA [None]
  - MEMORY IMPAIRMENT [None]
  - OEDEMA PERIPHERAL [None]
  - PARANOIA [None]
  - REFUSAL OF TREATMENT BY PATIENT [None]
